FAERS Safety Report 7672438-0 (Version None)
Quarter: 2011Q3

REPORT INFORMATION
  Report Type: 
  Country: None (occurrence: None)
  Receive Date: 20110809
  Receipt Date: 20110803
  Transmission Date: 20111222
  Serious: Yes (Life-Threatening)
  Sender: FDA-Public Use
  Company Number: FR-MERCK-1108FRA00023

PATIENT
  Age: 68 Year
  Sex: Male

DRUGS (3)
  1. DESLORATADINE [Concomitant]
     Route: 048
  2. FORMOTEROL FUMARATE [Concomitant]
     Route: 055
  3. SINGULAIR [Suspect]
     Indication: ASTHMA
     Route: 048
     Dates: start: 20110301, end: 20110301

REACTIONS (4)
  - SUICIDE ATTEMPT [None]
  - NIGHTMARE [None]
  - DEPRESSION [None]
  - SUICIDAL IDEATION [None]
